FAERS Safety Report 11199904 (Version 1)
Quarter: 2015Q2

REPORT INFORMATION
  Report Type: Spontaneous
  Country: US (occurrence: None)
  Receive Date: 20150617
  Receipt Date: 20150617
  Transmission Date: 20150821
  Serious: No
  Sender: FDA-Public Use
  Company Number: None

PATIENT
  Age: 86 Year
  Sex: Female
  Weight: 54.43 kg

DRUGS (8)
  1. TIAZAC [Suspect]
     Active Substance: DILTIAZEM HYDROCHLORIDE
     Indication: HEART RATE IRREGULAR
  2. SNYTHROID 25MCG [Concomitant]
  3. TIAZAC [Suspect]
     Active Substance: DILTIAZEM HYDROCHLORIDE
     Indication: BLOOD PRESSURE
  4. ASPIRIN 350 MG [Concomitant]
  5. TAZTIA 180MG [Concomitant]
  6. VIT D 1000 [Concomitant]
  7. ULTRAM 100MG [Concomitant]
  8. MAGNESIUM 200 MG [Concomitant]

REACTIONS (3)
  - Asthenia [None]
  - Fatigue [None]
  - Product substitution issue [None]
